FAERS Safety Report 23468348 (Version 1)
Quarter: 2024Q1

REPORT INFORMATION
  Report Type: Spontaneous
  Country: US (occurrence: US)
  Receive Date: 20240202
  Receipt Date: 20240202
  Transmission Date: 20240410
  Serious: No
  Sender: FDA-Public Use
  Company Number: US-ABBVIE-5608559

PATIENT
  Age: 0 Year
  Sex: Male
  Weight: 2 kg

DRUGS (6)
  1. IRON DEXTRAN [Suspect]
     Active Substance: IRON DEXTRAN
     Indication: Product used for unknown indication
     Route: 065
     Dates: start: 20231205
  2. OMEGAVEN [Concomitant]
     Active Substance: FISH OIL
     Indication: Bilirubin conjugated increased
     Dosage: 0.5G/KG/DAY
     Route: 042
     Dates: start: 20231118
  3. OMEGAVEN [Concomitant]
     Active Substance: FISH OIL
     Indication: Bilirubin conjugated increased
     Dosage: INCREASED TO 1G/KG/DAY
     Route: 042
     Dates: start: 20231119
  4. LEVOTHYROXINE [Concomitant]
     Active Substance: LEVOTHYROXINE\LEVOTHYROXINE SODIUM
     Indication: Product used for unknown indication
  5. PHENOBARBITAL [Concomitant]
     Active Substance: PHENOBARBITAL
     Indication: Product used for unknown indication
  6. SMOFLIPID [Concomitant]
     Active Substance: FISH OIL\MEDIUM-CHAIN TRIGLYCERIDES\OLIVE OIL\SOYBEAN OIL
     Indication: Parenteral nutrition
     Route: 042
     Dates: start: 20231108

REACTIONS (2)
  - Vascular device occlusion [Recovered/Resolved]
  - Vascular device occlusion [Unknown]

NARRATIVE: CASE EVENT DATE: 20240107
